FAERS Safety Report 9085370 (Version 1)
Quarter: 2013Q1

REPORT INFORMATION
  Report Type: Spontaneous
  Country: US (occurrence: US)
  Receive Date: 20130131
  Receipt Date: 20130131
  Transmission Date: 20140127
  Serious: No
  Sender: FDA-Public Use
  Company Number: US-PFIZER INC-2013033976

PATIENT
  Age: 58 Year
  Sex: Male

DRUGS (1)
  1. MECLOZINE HCL [Suspect]
     Indication: VERTIGO
     Dosage: UNK

REACTIONS (2)
  - Drug ineffective [Not Recovered/Not Resolved]
  - Fall [Not Recovered/Not Resolved]
